FAERS Safety Report 4589241-0 (Version None)
Quarter: 2005Q1

REPORT INFORMATION
  Report Type: 
  Country: None (occurrence: None)
  Receive Date: 20050223
  Receipt Date: 20050210
  Transmission Date: 20050727
  Serious: Yes (Other)
  Sender: FDA-Public Use
  Company Number: PHBS2005EE02234

PATIENT
  Sex: Female

DRUGS (2)
  1. LAMISIL [Suspect]
     Indication: FUNGAL SKIN INFECTION
     Dosage: 250 MG, QD
     Route: 048
  2. NASOREX [Concomitant]

REACTIONS (2)
  - AGEUSIA [None]
  - ANOSMIA [None]
